FAERS Safety Report 22147169 (Version 1)
Quarter: 2023Q1

REPORT INFORMATION
  Report Type: Spontaneous
  Country: FR (occurrence: FR)
  Receive Date: 20230328
  Receipt Date: 20230328
  Transmission Date: 20230418
  Serious: Yes (Hospitalization)
  Sender: FDA-Public Use
  Company Number: None

PATIENT
  Age: 19 Year
  Sex: Female

DRUGS (3)
  1. ALPRAZOLAM [Suspect]
     Active Substance: ALPRAZOLAM
     Indication: Product used for unknown indication
     Dosage: 5 MILLIGRAM (0.25 MG X20 TABLETS)
     Route: 048
     Dates: start: 20230227, end: 20230227
  2. SERTRALINE [Suspect]
     Active Substance: SERTRALINE HYDROCHLORIDE
     Indication: Product used for unknown indication
     Dosage: 2900 MILLIGRAM (25 MG X 4 TABS + 50 MG X 56 TABS)
     Route: 048
     Dates: start: 20230227, end: 20230227
  3. DOXYLAMINE [Suspect]
     Active Substance: DOXYLAMINE
     Indication: Product used for unknown indication
     Dosage: UNK, NP
     Route: 048
     Dates: start: 20230227, end: 20230227

REACTIONS (6)
  - Poisoning deliberate [Recovered/Resolved]
  - Psychomotor skills impaired [Recovered/Resolved]
  - Mydriasis [Recovered/Resolved]
  - Amnesia [Recovered/Resolved]
  - Vomiting [Recovered/Resolved]
  - Tachycardia [Recovered/Resolved]

NARRATIVE: CASE EVENT DATE: 20230227
